FAERS Safety Report 10670676 (Version 2)
Quarter: 2015Q1

REPORT INFORMATION
  Report Type: Spontaneous
  Country: US (occurrence: None)
  Receive Date: 20141219
  Receipt Date: 20150126
  Transmission Date: 20150720
  Serious: Yes (Other)
  Sender: FDA-Public Use
  Company Number: 2014-US-010465

PATIENT
  Age: 42 Year
  Sex: Male

DRUGS (5)
  1. CYMBALTA [Concomitant]
     Active Substance: DULOXETINE HYDROCHLORIDE
  2. ADDERALL XR (AMFETAMINE ASPARTATE, AMFETAMINE SULFATE), DEXAMFEAMINE SACCHARATE, DEXAMFETAMINE SULFATE) [Concomitant]
  3. XYREM [Suspect]
     Active Substance: SODIUM OXYBATE
     Indication: SLEEP DISORDER
     Route: 048
     Dates: start: 20140721, end: 2014
  4. LITHIUM [Concomitant]
     Active Substance: LITHIUM CARBONATE
  5. CONCERTA (METHYLPHENIDATE HYDROCHLORIDE) [Concomitant]

REACTIONS (12)
  - Discomfort [None]
  - Dizziness [None]
  - Muscle spasms [None]
  - Seizure [None]
  - Paradoxical drug reaction [None]
  - Drug ineffective [None]
  - Product use issue [None]
  - Feeling drunk [None]
  - Drug resistance [None]
  - Agitation [None]
  - Prescribed overdose [None]
  - Insomnia [None]

NARRATIVE: CASE EVENT DATE: 2014
